FAERS Safety Report 12932896 (Version 1)
Quarter: 2016Q4

REPORT INFORMATION
  Report Type: Spontaneous
  Country: US (occurrence: US)
  Receive Date: 20161111
  Receipt Date: 20161111
  Transmission Date: 20170207
  Serious: Yes (Other)
  Sender: FDA-Public Use
  Company Number: US-TEVA-711280ACC

PATIENT
  Sex: Female
  Weight: 113.5 kg

DRUGS (2)
  1. PARAGARD T 380A [Suspect]
     Active Substance: COPPER
     Indication: CONTRACEPTION
     Dates: start: 201310, end: 20161026
  2. CYMBALTA [Concomitant]
     Active Substance: DULOXETINE HYDROCHLORIDE
     Indication: FIBROMYALGIA
     Dates: start: 20160422

REACTIONS (6)
  - Vaginal haemorrhage [Unknown]
  - Abdominal pain lower [Recovered/Resolved]
  - Infection [Unknown]
  - Anovulatory cycle [Unknown]
  - Device dislocation [Recovered/Resolved]
  - Precancerous cells present [Recovered/Resolved]

NARRATIVE: CASE EVENT DATE: 2015
